FAERS Safety Report 22814371 (Version 16)
Quarter: 2023Q4

REPORT INFORMATION
  Report Type: Spontaneous
  Country: US (occurrence: US)
  Receive Date: 20230811
  Receipt Date: 20231208
  Transmission Date: 20240110
  Serious: No
  Sender: FDA-Public Use
  Company Number: US-UNITED THERAPEUTICS-UNT-2023-022210

PATIENT
  Sex: Female

DRUGS (27)
  1. REMODULIN [Suspect]
     Active Substance: TREPROSTINIL
     Indication: Pulmonary arterial hypertension
     Dosage: 0.020 ?G/KG (RATE OF 19 UL/HR), CONTINUING
     Route: 058
     Dates: start: 2023
  2. REMODULIN [Suspect]
     Active Substance: TREPROSTINIL
     Dosage: 0.02056 ?G/KG, CONTINUING
     Route: 058
     Dates: start: 2023
  3. REMODULIN [Suspect]
     Active Substance: TREPROSTINIL
     Dosage: 0.02273 ?G/KG, CONTINUING
     Route: 058
     Dates: start: 2023
  4. REMODULIN [Suspect]
     Active Substance: TREPROSTINIL
     Dosage: 0.02489 ?G/KG, CONTINUING
     Route: 058
     Dates: start: 2023
  5. REMODULIN [Suspect]
     Active Substance: TREPROSTINIL
     Dosage: 0.02922 ?G/KG, CONTINUING
     Route: 058
     Dates: start: 2023
  6. REMODULIN [Suspect]
     Active Substance: TREPROSTINIL
     Dosage: 0.03355 ?G/KG, CONTINUING
     Route: 058
     Dates: start: 2023
  7. REMODULIN [Suspect]
     Active Substance: TREPROSTINIL
     Dosage: 0.03571 ?G/KG, CONTINUING
     Route: 058
     Dates: start: 2023
  8. REMODULIN [Suspect]
     Active Substance: TREPROSTINIL
     Dosage: UNK, CONTINUING
     Route: 058
     Dates: start: 202307
  9. REMODULIN [Suspect]
     Active Substance: TREPROSTINIL
     Indication: Pulmonary arterial hypertension
     Dosage: 0.04143 ?G/KG, CONTINUING
     Route: 058
     Dates: start: 2023
  10. REMODULIN [Suspect]
     Active Substance: TREPROSTINIL
     Dosage: 0.04113 ?G/KG, CONTINUING
     Route: 058
     Dates: start: 2023
  11. REMODULIN [Suspect]
     Active Substance: TREPROSTINIL
     Dosage: 0.04545 ?G/KG, CONTINUING
     Route: 058
     Dates: start: 2023
  12. REMODULIN [Suspect]
     Active Substance: TREPROSTINIL
     Dosage: 0.04762 ?G/KG, CONTINUING
     Route: 058
     Dates: start: 2023
  13. REMODULIN [Suspect]
     Active Substance: TREPROSTINIL
     Dosage: 0.04978 ?G/KG, CONTINUING
     Route: 058
     Dates: start: 2023
  14. REMODULIN [Suspect]
     Active Substance: TREPROSTINIL
     Dosage: UNK, CONTINUING
     Route: 058
     Dates: start: 2023
  15. TADALAFIL [Suspect]
     Active Substance: TADALAFIL
     Indication: Product used for unknown indication
     Dosage: 20 MG, QD
     Route: 065
  16. LASIX [Suspect]
     Active Substance: FUROSEMIDE
     Indication: Product used for unknown indication
     Dosage: UNK
     Route: 065
  17. TYLENOL [Suspect]
     Active Substance: ACETAMINOPHEN
     Indication: Headache
     Dosage: UNK
     Route: 065
  18. COMPAZINE [Suspect]
     Active Substance: PROCHLORPERAZINE MALEATE
     Indication: Headache
     Dosage: UNK
     Route: 065
  19. OXYCODONE [Suspect]
     Active Substance: OXYCODONE
     Indication: Infusion site pain
     Dosage: UNK
     Route: 065
  20. OXYCODONE [Suspect]
     Active Substance: OXYCODONE
     Indication: Arthralgia
  21. OXYCODONE [Suspect]
     Active Substance: OXYCODONE
     Indication: Pain in extremity
  22. BUTRANS [Suspect]
     Active Substance: BUPRENORPHINE
     Indication: Infusion site pain
     Dosage: UNK
     Route: 065
  23. BUTRANS [Suspect]
     Active Substance: BUPRENORPHINE
     Indication: Pain in extremity
  24. BUTRANS [Suspect]
     Active Substance: BUPRENORPHINE
     Indication: Arthralgia
  25. DEVICE\POLYURETHANE [Suspect]
     Active Substance: DEVICE\POLYURETHANE
     Indication: Product used for unknown indication
     Dosage: UNK
     Route: 065
  26. ADEMPAS [Concomitant]
     Active Substance: RIOCIGUAT
     Indication: Product used for unknown indication
     Dosage: 0.5 MG, TID
     Route: 048
     Dates: start: 20230803, end: 2023
  27. AMBRISENTAN [Concomitant]
     Active Substance: AMBRISENTAN
     Indication: Product used for unknown indication
     Dosage: UNK
     Route: 065

REACTIONS (40)
  - Joint stiffness [Not Recovered/Not Resolved]
  - Migraine [Not Recovered/Not Resolved]
  - Cough [Not Recovered/Not Resolved]
  - Infusion site pain [Not Recovered/Not Resolved]
  - Nasopharyngitis [Not Recovered/Not Resolved]
  - Seasonal allergy [Not Recovered/Not Resolved]
  - Dyspnoea exertional [Not Recovered/Not Resolved]
  - Fluid retention [Unknown]
  - Infusion site erythema [Not Recovered/Not Resolved]
  - Infusion site hypersensitivity [Not Recovered/Not Resolved]
  - Dermatitis contact [Unknown]
  - Dizziness [Unknown]
  - Pain in extremity [Not Recovered/Not Resolved]
  - Pain [Unknown]
  - Arthralgia [Not Recovered/Not Resolved]
  - Joint swelling [Not Recovered/Not Resolved]
  - Peripheral swelling [Not Recovered/Not Resolved]
  - Paraesthesia [Not Recovered/Not Resolved]
  - Infusion site swelling [Not Recovered/Not Resolved]
  - Infusion site warmth [Unknown]
  - Infusion site haemorrhage [Unknown]
  - Infusion site discharge [Unknown]
  - Infusion site infection [Unknown]
  - Infusion site reaction [Unknown]
  - Dyspnoea [Unknown]
  - Hypoaesthesia [Unknown]
  - Breath sounds abnormal [Unknown]
  - Device dislocation [Unknown]
  - Intentional medical device removal by patient [Unknown]
  - Device maintenance issue [Unknown]
  - Product administration interrupted [Recovered/Resolved]
  - Therapy non-responder [Unknown]
  - Tinnitus [Unknown]
  - Hypoacusis [Unknown]
  - Treatment noncompliance [Unknown]
  - Nausea [Unknown]
  - Pain in jaw [Unknown]
  - Device adhesion issue [Unknown]
  - Feeling abnormal [Unknown]
  - Infusion site discomfort [Unknown]

NARRATIVE: CASE EVENT DATE: 20230101
